FAERS Safety Report 13389528 (Version 1)
Quarter: 2017Q1

REPORT INFORMATION
  Report Type: Report from Study
  Country: CA (occurrence: CA)
  Receive Date: 20170330
  Receipt Date: 20170330
  Transmission Date: 20170429
  Serious: Yes (Other)
  Sender: FDA-Public Use
  Company Number: CA-JNJFOC-20170325506

PATIENT
  Age: 55 Year
  Sex: Female

DRUGS (1)
  1. REMICADE [Suspect]
     Active Substance: INFLIXIMAB
     Indication: COLITIS ULCERATIVE
     Route: 042
     Dates: start: 20160927, end: 20170214

REACTIONS (10)
  - Infusion related reaction [Recovered/Resolved]
  - Erythema [Recovered/Resolved]
  - Rash vesicular [Recovered/Resolved]
  - Adverse drug reaction [Not Recovered/Not Resolved]
  - Periorbital oedema [Recovered/Resolved]
  - Off label use [Unknown]
  - Product use issue [Unknown]
  - Throat tightness [Recovered/Resolved]
  - Dyspnoea [Recovered/Resolved]
  - Oxygen saturation decreased [Recovered/Resolved]

NARRATIVE: CASE EVENT DATE: 20160927
